FAERS Safety Report 7783819-9 (Version None)
Quarter: 2011Q3

REPORT INFORMATION
  Report Type: 
  Country: None (occurrence: None)
  Receive Date: 20110928
  Receipt Date: 20110919
  Transmission Date: 20111222
  Serious: Yes (Other)
  Sender: FDA-Public Use
  Company Number: US-BAYER-2011-088315

PATIENT
  Sex: Female

DRUGS (1)
  1. DROSPIRENONE AND ETHINYL ESTRADIOL [Suspect]
     Dosage: UNK
     Dates: start: 20080722, end: 20080901

REACTIONS (4)
  - ANHEDONIA [None]
  - PAIN [None]
  - THROMBOPHLEBITIS SUPERFICIAL [None]
  - EMOTIONAL DISTRESS [None]
